FAERS Safety Report 17931307 (Version 3)
Quarter: 2020Q4

REPORT INFORMATION
  Report Type: Report from Study
  Country: None (occurrence: US)
  Receive Date: 20200623
  Receipt Date: 20201105
  Transmission Date: 20210113
  Serious: No
  Sender: FDA-Public Use
  Company Number: US-BIOVITRUM-2020US3266

PATIENT
  Age: 7 Month
  Sex: Female

DRUGS (3)
  1. KINERET [Suspect]
     Active Substance: ANAKINRA
     Route: 058
     Dates: start: 20191127
  2. KINERET [Suspect]
     Active Substance: ANAKINRA
     Indication: JUVENILE IDIOPATHIC ARTHRITIS
     Route: 058
     Dates: start: 20191029
  3. KINERET [Suspect]
     Active Substance: ANAKINRA
     Route: 058
     Dates: start: 20191030

REACTIONS (9)
  - Joint swelling [Unknown]
  - Blood sodium abnormal [Unknown]
  - Pyrexia [Unknown]
  - Roseola [Unknown]
  - Rash [Unknown]
  - Injection site reaction [Unknown]
  - Off label use [Not Recovered/Not Resolved]
  - Peripheral swelling [Unknown]
  - Blood potassium abnormal [Unknown]

NARRATIVE: CASE EVENT DATE: 20191029
